FAERS Safety Report 19952077 (Version 52)
Quarter: 2024Q4

REPORT INFORMATION
  Report Type: Spontaneous
  Country: CA (occurrence: CA)
  Receive Date: 20211014
  Receipt Date: 20241121
  Transmission Date: 20250115
  Serious: Yes (Other)
  Sender: CELLTRION
  Company Number: CA-CELLTRION INC.-2021CA012894

PATIENT

DRUGS (52)
  1. INFLECTRA [Suspect]
     Active Substance: INFLIXIMAB-DYYB
     Indication: Crohn^s disease
     Dosage: 300 MG, Q 0, 2, 6 WEEKS, THEN EVERY 8 WEEKS
     Route: 042
     Dates: start: 20190429, end: 20190822
  2. INFLECTRA [Suspect]
     Active Substance: INFLIXIMAB-DYYB
     Dosage: 300 MG (RESCUE DOSE)
     Route: 042
     Dates: start: 20190914, end: 20190914
  3. INFLECTRA [Suspect]
     Active Substance: INFLIXIMAB-DYYB
     Dosage: 400 MG, EVERY 4 WEEKS
     Route: 042
     Dates: start: 20191011
  4. INFLECTRA [Suspect]
     Active Substance: INFLIXIMAB-DYYB
     Dosage: 400 MG, EVERY 4 WEEKS
     Route: 042
     Dates: start: 20210721
  5. INFLECTRA [Suspect]
     Active Substance: INFLIXIMAB-DYYB
     Dosage: 400 MG, EVERY 4 WEEKS
     Route: 042
     Dates: start: 20210817, end: 20210817
  6. INFLECTRA [Suspect]
     Active Substance: INFLIXIMAB-DYYB
     Dosage: 400 MG, EVERY 4 WEEKS
     Route: 042
     Dates: start: 20210921
  7. INFLECTRA [Suspect]
     Active Substance: INFLIXIMAB-DYYB
     Dosage: 400 MG, EVERY 4 WEEKS
     Route: 042
     Dates: start: 20211021
  8. INFLECTRA [Suspect]
     Active Substance: INFLIXIMAB-DYYB
     Dosage: 400 MG, AFTER 8 WEEKS AND 6 DAYS (PRESCRIBED EVERY 4 WEEKS)
     Route: 042
     Dates: start: 20211222
  9. INFLECTRA [Suspect]
     Active Substance: INFLIXIMAB-DYYB
     Dosage: 400 MG, EVERY 4 WEEKS
     Route: 042
     Dates: start: 20220121
  10. INFLECTRA [Suspect]
     Active Substance: INFLIXIMAB-DYYB
     Dosage: 400 MG, EVERY 4 WEEKS
     Route: 042
     Dates: start: 20220121
  11. INFLECTRA [Suspect]
     Active Substance: INFLIXIMAB-DYYB
     Dosage: 400 MG, EVERY 4 WEEKS
     Route: 042
     Dates: start: 20220218
  12. INFLECTRA [Suspect]
     Active Substance: INFLIXIMAB-DYYB
     Dosage: 400 MG, EVERY 4 WEEKS
     Route: 042
     Dates: start: 20220318
  13. INFLECTRA [Suspect]
     Active Substance: INFLIXIMAB-DYYB
     Dosage: 400 MG, EVERY 4 WEEKS
     Route: 042
     Dates: start: 20220502
  14. INFLECTRA [Suspect]
     Active Substance: INFLIXIMAB-DYYB
     Dosage: 400 MG, AFTER 6 WEEKS AND 2 DAYS (PRESCRIBED EVERY 4 WEEKS)
     Route: 042
     Dates: start: 20220615
  15. INFLECTRA [Suspect]
     Active Substance: INFLIXIMAB-DYYB
     Dosage: 400 MG, EVERY 4 WEEKS
     Route: 042
     Dates: start: 20220712
  16. INFLECTRA [Suspect]
     Active Substance: INFLIXIMAB-DYYB
     Dosage: 400 MG, AFTER 8 WEEKS AND 3 DAYS (PRESCRIBED EVERY 4 WEEKS)
     Route: 042
     Dates: start: 20220909
  17. INFLECTRA [Suspect]
     Active Substance: INFLIXIMAB-DYYB
     Dosage: 400 MG, EVERY 4 WEEKS
     Route: 042
     Dates: start: 20221013
  18. INFLECTRA [Suspect]
     Active Substance: INFLIXIMAB-DYYB
     Dosage: 400 MG, EVERY 4 WEEKS
     Route: 042
     Dates: start: 20221110
  19. INFLECTRA [Suspect]
     Active Substance: INFLIXIMAB-DYYB
     Dosage: 400 MG, EVERY 4 WEEKS
     Route: 042
     Dates: start: 20221213
  20. INFLECTRA [Suspect]
     Active Substance: INFLIXIMAB-DYYB
     Dosage: 400 MG, EVERY 4 WEEKS
     Route: 042
     Dates: start: 20230110
  21. INFLECTRA [Suspect]
     Active Substance: INFLIXIMAB-DYYB
     Dosage: 400 MG, EVERY 4 WEEKS
     Route: 042
     Dates: start: 20230209
  22. INFLECTRA [Suspect]
     Active Substance: INFLIXIMAB-DYYB
     Dosage: 400 MG, AFTER 6 WEEKS AND 1 DAY (PRESCRIBED EVERY 4 WEEKS)
     Route: 042
     Dates: start: 20230324
  23. INFLECTRA [Suspect]
     Active Substance: INFLIXIMAB-DYYB
     Dosage: 400 MG, EVERY 4 WEEKS
     Route: 042
     Dates: start: 20230419
  24. INFLECTRA [Suspect]
     Active Substance: INFLIXIMAB-DYYB
     Dosage: 400 MG, EVERY 4 WEEKS
     Route: 042
     Dates: start: 20230517
  25. INFLECTRA [Suspect]
     Active Substance: INFLIXIMAB-DYYB
     Dosage: 400 MG, EVERY 4 WEEKS
     Route: 042
     Dates: start: 20230614
  26. INFLECTRA [Suspect]
     Active Substance: INFLIXIMAB-DYYB
     Dosage: 400 MG, AFTER 6 WEEKS AND 2 DAYS (PRESCRIBED EVERY 4 WEEKS)
     Route: 042
     Dates: start: 20230728
  27. INFLECTRA [Suspect]
     Active Substance: INFLIXIMAB-DYYB
     Dosage: 400 MG, AFTER 3 WEEKS AND 4 DAYS (EVERY 4 WEEKS)
     Route: 042
     Dates: start: 20230824
  28. INFLECTRA [Suspect]
     Active Substance: INFLIXIMAB-DYYB
     Dosage: 400 MG, EVERY 4 WEEKS
     Route: 042
     Dates: start: 20230921
  29. INFLECTRA [Suspect]
     Active Substance: INFLIXIMAB-DYYB
     Dosage: 400 MG, EVERY 4 WEEKS
     Route: 042
     Dates: start: 20231019
  30. INFLECTRA [Suspect]
     Active Substance: INFLIXIMAB-DYYB
     Dosage: 400 MG, EVERY 4 WEEKS
     Route: 042
     Dates: start: 20231116
  31. INFLECTRA [Suspect]
     Active Substance: INFLIXIMAB-DYYB
     Dosage: 400 MG, EVERY 4 WEEKS
     Route: 042
     Dates: start: 20231221
  32. INFLECTRA [Suspect]
     Active Substance: INFLIXIMAB-DYYB
     Dosage: 400 MG, AFTER 6 WEEKS (PRESCRIBED EVERY 4 WEEKS)
     Route: 042
     Dates: start: 20240201
  33. INFLECTRA [Suspect]
     Active Substance: INFLIXIMAB-DYYB
     Dosage: 400 MG, EVERY 4 WEEKS
     Route: 042
     Dates: start: 20240717
  34. INFLECTRA [Suspect]
     Active Substance: INFLIXIMAB-DYYB
     Dosage: 400 MG, AFTER 5 WEEKS AND 1 DAY (PRESCRIBED EVERY 4 WEEKS)
     Route: 042
     Dates: start: 20240822
  35. INFLECTRA [Suspect]
     Active Substance: INFLIXIMAB-DYYB
     Dosage: 400 MG, AFTER 4 WEEKS
     Route: 042
     Dates: start: 20240919
  36. INFLECTRA [Suspect]
     Active Substance: INFLIXIMAB-DYYB
     Dosage: 400 MG (EVERY 4 WEEK)
     Route: 042
     Dates: start: 20241017
  37. INFLECTRA [Suspect]
     Active Substance: INFLIXIMAB-DYYB
     Dosage: 400 MG, EVERY 4 WEEK
     Route: 042
     Dates: start: 20241113
  38. FOLIC ACID [Concomitant]
     Active Substance: FOLIC ACID
     Dosage: 3 MG, 1X/DAY
     Route: 048
  39. FOLIC ACID [Concomitant]
     Active Substance: FOLIC ACID
     Dosage: 1 MG, 1X/DAY
     Route: 048
  40. LORAZEPAM [Concomitant]
     Active Substance: LORAZEPAM
     Dosage: 1 MG, AS NEEDED
     Route: 048
     Dates: start: 202001
  41. PRAZOSIN [Concomitant]
     Active Substance: PRAZOSIN
     Dosage: 5 MG, DAILY
     Route: 048
     Dates: start: 202001
  42. PRAZOSIN [Concomitant]
     Active Substance: PRAZOSIN
     Dosage: 5 MG, 1X/DAY
     Route: 048
     Dates: start: 202001
  43. PREDNISONE [Concomitant]
     Active Substance: PREDNISONE
     Dosage: 35 MG, 1X/DAY (TAPERING DOWN - AT 5 MG AS OF 19FEB2022)
     Route: 048
     Dates: start: 20190225
  44. POLYETHYLENE GLYCOL 3350 [Concomitant]
     Active Substance: POLYETHYLENE GLYCOL 3350
     Dosage: 2 DF, DAILY, 2 DOSES QD
     Route: 065
  45. RISPERIDONE [Concomitant]
     Active Substance: RISPERIDONE
     Dosage: 1.5 MG, 1X/DAY
     Route: 048
  46. RISPERIDONE [Concomitant]
     Active Substance: RISPERIDONE
     Dosage: 3 MG, 1X/DAY
     Route: 048
  47. SENOKOT [Concomitant]
     Active Substance: SENNOSIDES
     Dosage: 2 DF, 2X/DAY (2 TABS EVERY DAY)
     Route: 048
  48. SENOKOT [Concomitant]
     Active Substance: SENNOSIDES
     Dosage: 2 DF, DAILY, 2 TABS QD (DAILY)
     Route: 048
  49. SERTRALINE [Concomitant]
     Active Substance: SERTRALINE HYDROCHLORIDE
     Dosage: 200 MG, DAILY
     Route: 048
     Dates: start: 202001
  50. SERTRALINE [Concomitant]
     Active Substance: SERTRALINE HYDROCHLORIDE
     Dosage: 200 MG, 1X/DAY
     Route: 048
     Dates: start: 202001
  51. SOLU-MEDROL [Concomitant]
     Active Substance: METHYLPREDNISOLONE SODIUM SUCCINATE
     Dosage: 1 DF
     Route: 042
     Dates: start: 20190217, end: 201902
  52. TYLENOL [Concomitant]
     Active Substance: ACETAMINOPHEN
     Dosage: 1 DF, AS NEEDED
     Route: 048

REACTIONS (41)
  - Abortion spontaneous [Unknown]
  - Anal haemorrhage [Recovered/Resolved]
  - Pneumonia [Not Recovered/Not Resolved]
  - Kidney infection [Recovering/Resolving]
  - Staphylococcal bacteraemia [Not Recovered/Not Resolved]
  - Sinusitis bacterial [Recovered/Resolved]
  - Condition aggravated [Not Recovered/Not Resolved]
  - Bronchitis [Not Recovered/Not Resolved]
  - Weight decreased [Not Recovered/Not Resolved]
  - Lichen sclerosus [Unknown]
  - Weight increased [Not Recovered/Not Resolved]
  - Therapeutic response decreased [Unknown]
  - Dysmenorrhoea [Unknown]
  - Musculoskeletal pain [Unknown]
  - Pain in extremity [Unknown]
  - Illness [Not Recovered/Not Resolved]
  - Malaise [Unknown]
  - Stress [Unknown]
  - Cold sweat [Recovered/Resolved]
  - Migraine [Recovered/Resolved]
  - Periorbital swelling [Recovered/Resolved]
  - Cystitis interstitial [Unknown]
  - Ageusia [Not Recovered/Not Resolved]
  - Discomfort [Recovered/Resolved]
  - Cough [Not Recovered/Not Resolved]
  - Rhinorrhoea [Not Recovered/Not Resolved]
  - Asthenia [Recovering/Resolving]
  - Headache [Unknown]
  - Arthralgia [Not Recovered/Not Resolved]
  - Rash papular [Unknown]
  - COVID-19 [Recovered/Resolved]
  - Pyrexia [Recovered/Resolved]
  - Fatigue [Recovered/Resolved]
  - Nasopharyngitis [Recovering/Resolving]
  - Influenza [Recovering/Resolving]
  - Dizziness [Not Recovered/Not Resolved]
  - Sinusitis [Not Recovered/Not Resolved]
  - Dysmenorrhoea [Unknown]
  - Off label use [Unknown]
  - Intentional product use issue [Unknown]
  - Inappropriate schedule of product administration [Unknown]

NARRATIVE: CASE EVENT DATE: 20210101
